FAERS Safety Report 7331821-3 (Version None)
Quarter: 2011Q1

REPORT INFORMATION
  Report Type: 
  Country: None (occurrence: None)
  Receive Date: 20110304
  Receipt Date: 20110224
  Transmission Date: 20110831
  Serious: Yes (Death)
  Sender: FDA-Public Use
  Company Number: NL-MILLENNIUM PHARMACEUTICALS, INC.-2011-00797

PATIENT

DRUGS (7)
  1. RENAGEL                            /01459901/ [Concomitant]
     Dosage: 1600 MG, TID
  2. VENOFER [Concomitant]
     Dosage: 100 MG, 1/WEEK
     Dates: start: 20090623
  3. VELCADE [Suspect]
     Indication: MULTIPLE MYELOMA
     Dosage: 3.5 MG, UNK
     Dates: start: 20100621
  4. NEORECORMON [Concomitant]
     Dosage: 1 DF, 3/WEEK
     Dates: start: 20090623
  5. CALCICHEW [Concomitant]
     Dosage: 500 MG, BID
     Dates: start: 20100719
  6. ZOMETA [Concomitant]
     Dosage: 4 MG, QD
  7. ROCALTROL [Concomitant]
     Dosage: .25 UG, UNK
     Dates: start: 20100719

REACTIONS (2)
  - HEPATITIS [None]
  - HEPATIC FAILURE [None]
